FAERS Safety Report 10186361 (Version 1)
Quarter: 2014Q2

REPORT INFORMATION
  Report Type: Spontaneous
  Country: US (occurrence: US)
  Receive Date: 20140521
  Receipt Date: 20140521
  Transmission Date: 20141212
  Serious: No
  Sender: FDA-Public Use
  Company Number: US-ASTRAZENECA-2013SE82123

PATIENT
  Age: 79 Year
  Sex: Female
  Weight: 54.4 kg

DRUGS (4)
  1. PULMICORT FLEXHALER [Suspect]
     Indication: ASTHMA
     Route: 055
     Dates: end: 201310
  2. PULMICORT FLEXHALER [Suspect]
     Indication: ASTHMA
     Route: 055
     Dates: start: 201310
  3. SYMBICORT  PMDI [Suspect]
     Indication: ASTHMA
     Dosage: 2 PUFFS BID
     Route: 055
     Dates: start: 20131022, end: 20131025
  4. MAXAIR [Concomitant]
     Indication: ASTHMA
     Dosage: DOSE UNKNOWN BID

REACTIONS (7)
  - Pain [Recovered/Resolved]
  - Myalgia [Recovered/Resolved]
  - Heart rate irregular [Recovered/Resolved]
  - Chills [Recovered/Resolved]
  - Pain in extremity [Recovered/Resolved]
  - Myalgia [Recovered/Resolved]
  - Off label use [Unknown]
